FAERS Safety Report 16601267 (Version 1)
Quarter: 2019Q3

REPORT INFORMATION
  Report Type: Spontaneous
  Country: ID (occurrence: ID)
  Receive Date: 20190719
  Receipt Date: 20190719
  Transmission Date: 20191004
  Serious: Yes (Other)
  Sender: FDA-Public Use
  Company Number: ID-ASTRAZENECA-2019SF01654

PATIENT
  Age: 50 Year
  Sex: Male

DRUGS (2)
  1. NEBILET [Concomitant]
     Active Substance: NEBIVOLOL
  2. XIGDUO XR [Suspect]
     Active Substance: DAPAGLIFLOZIN PROPANEDIOL\METFORMIN HYDROCHLORIDE
     Route: 048

REACTIONS (2)
  - Drug hypersensitivity [Unknown]
  - Penile swelling [Unknown]
